FAERS Safety Report 14566080 (Version 1)
Quarter: 2018Q1

REPORT INFORMATION
  Report Type: Spontaneous
  Country: US (occurrence: US)
  Receive Date: 20180223
  Receipt Date: 20180223
  Transmission Date: 20180509
  Serious: No
  Sender: FDA-Public Use
  Company Number: US-PFIZER INC-2018078763

PATIENT
  Sex: Female
  Weight: 56 kg

DRUGS (1)
  1. PREMARIN [Suspect]
     Active Substance: ESTROGENS, CONJUGATED
     Indication: SEXUALLY ACTIVE
     Dosage: SMALL AMOUNT APPLIED VAGINALLY2-3 TIMES A WEEK
     Route: 067

REACTIONS (4)
  - Discomfort [Recovered/Resolved]
  - Poor quality drug administered [Unknown]
  - Product odour abnormal [Unknown]
  - Drug ineffective for unapproved indication [Not Recovered/Not Resolved]
